FAERS Safety Report 21560391 (Version 2)
Quarter: 2022Q4

REPORT INFORMATION
  Report Type: Spontaneous
  Country: TW (occurrence: TW)
  Receive Date: 20221107
  Receipt Date: 20221109
  Transmission Date: 20230113
  Serious: Yes (Life-Threatening)
  Sender: FDA-Public Use
  Company Number: TW-BAYER-2022A154877

PATIENT
  Age: 65 Year
  Sex: Male

DRUGS (1)
  1. GADOBUTROL [Suspect]
     Active Substance: GADOBUTROL
     Indication: Magnetic resonance imaging
     Dosage: 5.6 ML, ONCE
     Dates: start: 20221102, end: 20221102

REACTIONS (7)
  - Contrast media allergy [None]
  - Loss of consciousness [None]
  - Gaze palsy [None]
  - Heart rate decreased [None]
  - Muscle twitching [None]
  - Oxygen saturation decreased [None]
  - Heart rate increased [None]

NARRATIVE: CASE EVENT DATE: 20221102
